FAERS Safety Report 26023774 (Version 1)
Quarter: 2025Q4

REPORT INFORMATION
  Report Type: Spontaneous
  Country: AU (occurrence: AU)
  Receive Date: 20251111
  Receipt Date: 20251111
  Transmission Date: 20260117
  Serious: Yes (Other)
  Sender: BAUSCH AND LOMB
  Company Number: AU-BAUSCHBL-2025BNL031539

PATIENT
  Age: 54 Year
  Sex: Male

DRUGS (5)
  1. PREDNISOLONE SODIUM PHOSPHATE [Suspect]
     Active Substance: PREDNISOLONE SODIUM PHOSPHATE
     Indication: Product used for unknown indication
  2. THYMOCYTE IMMUNE GLOBULIN NOS [Suspect]
     Active Substance: THYMOCYTE IMMUNE GLOBULIN NOS
     Indication: Product used for unknown indication
  3. MYCOPHENOLATE MOFETIL [Suspect]
     Active Substance: MYCOPHENOLATE MOFETIL
     Indication: Product used for unknown indication
  4. SIROLIMUS [Suspect]
     Active Substance: SIROLIMUS
     Indication: Product used for unknown indication
  5. TACROLIMUS [Suspect]
     Active Substance: TACROLIMUS
     Indication: Product used for unknown indication

REACTIONS (12)
  - Pulmonary mucormycosis [Unknown]
  - Angina pectoris [Unknown]
  - Cytomegalovirus viraemia [Unknown]
  - Hyperkalaemia [Unknown]
  - Pneumonia [Unknown]
  - Pneumonia necrotising [Unknown]
  - Polyomavirus viraemia [Unknown]
  - Pulmonary cavitation [Unknown]
  - BK virus infection [Unknown]
  - Cough [Unknown]
  - Haemoptysis [Unknown]
  - Pyrexia [Unknown]
